FAERS Safety Report 5746251-5 (Version None)
Quarter: 2008Q2

REPORT INFORMATION
  Report Type: 
  Country: None (occurrence: None)
  Receive Date: 20080522
  Receipt Date: 20080515
  Transmission Date: 20081010
  Serious: Yes (Other)
  Sender: FDA-Public Use
  Company Number: US-BAYER-200819275NA

PATIENT
  Age: 70 Year
  Sex: Female

DRUGS (1)
  1. ULTRAVIST (PHARMACY BULK) [Suspect]
     Indication: DRUG USE FOR UNKNOWN INDICATION
     Dates: start: 20080407, end: 20080407

REACTIONS (1)
  - DYSPNOEA [None]
